FAERS Safety Report 19450131 (Version 3)
Quarter: 2021Q3

REPORT INFORMATION
  Report Type: Other
  Country: JP (occurrence: JP)
  Receive Date: 20210622
  Receipt Date: 20210712
  Transmission Date: 20211014
  Serious: Yes (Hospitalization)
  Sender: FDA-Public Use
  Company Number: JP-ROCHE-2854556

PATIENT
  Age: 8 Decade
  Sex: Male

DRUGS (1)
  1. ACTEMRA [Suspect]
     Active Substance: TOCILIZUMAB
     Indication: RHEUMATOID ARTHRITIS
     Dosage: ONCE EVERY FOUR TO FIVE WEEKS
     Route: 041
     Dates: start: 20140908, end: 20200930

REACTIONS (2)
  - Off label use [Unknown]
  - Postoperative thoracic procedure complication [Recovering/Resolving]

NARRATIVE: CASE EVENT DATE: 20140908
